FAERS Safety Report 9692947 (Version 1)
Quarter: 2013Q4

REPORT INFORMATION
  Report Type: Spontaneous
  Country: US (occurrence: US)
  Receive Date: 20131118
  Receipt Date: 20131118
  Transmission Date: 20140711
  Serious: No
  Sender: FDA-Public Use
  Company Number: US-GLAXOSMITHKLINE-A1041759A

PATIENT
  Age: 74 Year
  Sex: Male

DRUGS (3)
  1. COREG CR [Suspect]
     Indication: PRODUCT USED FOR UNKNOWN INDICATION
     Dosage: 10MG PER DAY
     Route: 048
     Dates: start: 201309
  2. TAMSULOSIN [Suspect]
     Indication: HEART RATE INCREASED
     Dates: start: 201309
  3. MULTIPLE MEDICATIONS [Concomitant]

REACTIONS (2)
  - Tongue disorder [Unknown]
  - Pruritus genital [Unknown]
